FAERS Safety Report 4569684-1 (Version None)
Quarter: 2005Q1

REPORT INFORMATION
  Report Type: 
  Country: None (occurrence: None)
  Receive Date: 20050201
  Receipt Date: 20050112
  Transmission Date: 20050727
  Serious: Yes (Hospitalization)
  Sender: FDA-Public Use
  Company Number: ENT 2005-0005

PATIENT
  Sex: Female

DRUGS (2)
  1. COMTESS (ENTACAPONE) [Suspect]
     Indication: PARKINSON'S DISEASE
     Dosage: ORAL
     Route: 048
  2. INSULIN [Concomitant]

REACTIONS (3)
  - DRUG INTOLERANCE [None]
  - FACE OEDEMA [None]
  - GENERALISED OEDEMA [None]
